FAERS Safety Report 6243412-6 (Version None)
Quarter: 2009Q2

REPORT INFORMATION
  Report Type: 
  Country: None (occurrence: None)
  Receive Date: 20090618
  Receipt Date: 20090213
  Transmission Date: 20091009
  Serious: Yes (Hospitalization)
  Sender: FDA-Public Use
  Company Number: CIP08001232

PATIENT
  Age: 77 Year
  Sex: Female

DRUGS (18)
  1. ACTONEL [Suspect]
     Indication: OSTEOPOROSIS
     Dosage: 5 MG DAILY, ORAL
     Route: 048
     Dates: start: 20010630, end: 20020801
  2. ACTONEL [Suspect]
     Indication: OSTEOPOROSIS
     Dosage: 35 MG, 1 ONLY, ORAL ; 35 MG, ORAL
     Route: 048
     Dates: start: 20020810, end: 20020810
  3. ACTONEL [Suspect]
     Indication: OSTEOPOROSIS
     Dosage: 35 MG, 1 ONLY, ORAL ; 35 MG, ORAL
     Route: 048
     Dates: start: 20020901, end: 20061101
  4. FOSAMAX [Suspect]
     Indication: OSTEOPOROSIS
     Dosage: 10 MG, DAILY, ORAL ; 70 MG ONCE WEEKLY, ORAL
     Route: 048
     Dates: start: 19970501, end: 20010630
  5. FOSAMAX [Suspect]
     Indication: OSTEOPOROSIS
     Dosage: 10 MG, DAILY, ORAL ; 70 MG ONCE WEEKLY, ORAL
     Route: 048
     Dates: start: 20020801, end: 20020901
  6. FOSAMAX PLUS D [Suspect]
     Indication: OSTEOPOROSIS
     Dosage: 1 TABLET, CYCLIC 1/D, ORAL
     Route: 048
     Dates: start: 20060911, end: 20070107
  7. ASPIRIN [Concomitant]
  8. CALTRATE D (CALCIUM CARBONATE) [Concomitant]
  9. CENTRUM /00554501/ (MINERALS NOS, VITAMINS NOS) [Concomitant]
  10. FLOMAX /01280302/ (TAMSULOSIN HYDROCHLORIDE) [Concomitant]
  11. INDERAL /00030001/ (PROPRANOLOL) [Concomitant]
  12. LIPITOR [Concomitant]
  13. LISINOPRIL [Concomitant]
  14. HYDROCHLOROTHIAZIDE [Concomitant]
  15. FIORINAL /01000501/ (CAFFEINE, BUTALBITAL, ACETYLSALICYLIC ACID) [Concomitant]
  16. MEDROXYPROGESTERONE [Concomitant]
  17. VALIUM /00017001/ (DIAZEPAM) [Concomitant]
  18. AMBIEN [Concomitant]

REACTIONS (21)
  - ABSCESS JAW [None]
  - CELLULITIS [None]
  - DENTAL CARIES [None]
  - DYSPEPSIA [None]
  - FACIAL PAIN [None]
  - GINGIVAL BLEEDING [None]
  - HYPOAESTHESIA FACIAL [None]
  - IMPAIRED HEALING [None]
  - JAW DISORDER [None]
  - ORAL DISORDER [None]
  - ORAL MUCOSAL ERYTHEMA [None]
  - ORAL PAIN [None]
  - OSTEOMYELITIS [None]
  - OSTEONECROSIS [None]
  - PAIN IN JAW [None]
  - PARAESTHESIA [None]
  - PURULENCE [None]
  - SWELLING FACE [None]
  - TOOTH FRACTURE [None]
  - TOOTHACHE [None]
  - WOUND DEHISCENCE [None]
